FAERS Safety Report 6738484-6 (Version None)
Quarter: 2010Q2

REPORT INFORMATION
  Report Type: 
  Country: None (occurrence: None)
  Receive Date: 20100524
  Receipt Date: 20100511
  Transmission Date: 20101027
  Serious: Yes (Other)
  Sender: FDA-Public Use
  Company Number: PHHY2010MX31187

PATIENT
  Age: 72 Year
  Sex: Male

DRUGS (3)
  1. ACLASTA [Suspect]
     Indication: OSTEOPOROSIS
     Dosage: 1 AMPOULE (5 MG/100 ML) PER YEAR
     Dates: start: 20071001
  2. PHENYTOIN [Concomitant]
  3. CHLORTHALIDONE [Concomitant]

REACTIONS (2)
  - HEADACHE [None]
  - TESTICULAR PAIN [None]
